FAERS Safety Report 8491587-0 (Version None)
Quarter: 2012Q3

REPORT INFORMATION
  Report Type: 
  Country: None (occurrence: None)
  Receive Date: 20120706
  Receipt Date: 20120628
  Transmission Date: 20120928
  Serious: Yes (Hospitalization, Other)
  Sender: FDA-Public Use
  Company Number: US-AMGEN-USASP2012030940

PATIENT
  Age: 61 Year
  Sex: Female

DRUGS (1)
  1. ENBREL [Suspect]
     Indication: RHEUMATOID ARTHRITIS
     Dosage: 50 MG, QWK
     Dates: start: 20110701, end: 20120201

REACTIONS (12)
  - BLOOD GLUCOSE INCREASED [None]
  - URINE URIC ACID INCREASED [None]
  - NEPHROLITHIASIS [None]
  - BACK PAIN [None]
  - PAIN [None]
  - EXFOLIATIVE RASH [None]
  - INFECTION [None]
  - PYREXIA [None]
  - PAIN IN EXTREMITY [None]
  - FATIGUE [None]
  - TRIGGER FINGER [None]
  - RASH PRURITIC [None]
